FAERS Safety Report 6707605-3 (Version None)
Quarter: 2010Q2

REPORT INFORMATION
  Report Type: 
  Country: None (occurrence: None)
  Receive Date: 20100503
  Receipt Date: 20100429
  Transmission Date: 20101027
  Serious: Yes (Hospitalization)
  Sender: FDA-Public Use
  Company Number: US-B.I. PHARMACEUTICALS,INC./RIDGEFIELD-2010-BP-04376BP

PATIENT
  Age: 60 Year
  Sex: Female

DRUGS (3)
  1. AGGRENOX [Suspect]
     Indication: CEREBROVASCULAR ACCIDENT PROPHYLAXIS
     Route: 048
     Dates: start: 20100312, end: 20100326
  2. BP MEDS [Concomitant]
     Indication: BLOOD PRESSURE
  3. STATIN [Concomitant]

REACTIONS (1)
  - CEREBRAL HAEMORRHAGE [None]
